FAERS Safety Report 10793167 (Version 1)
Quarter: 2015Q1

REPORT INFORMATION
  Report Type: Spontaneous
  Country: US (occurrence: US)
  Receive Date: 20150213
  Receipt Date: 20150213
  Transmission Date: 20150721
  Serious: No
  Sender: FDA-Public Use
  Company Number: US-BAYER-2015-020717

PATIENT
  Sex: Female

DRUGS (3)
  1. ALEVE [Suspect]
     Active Substance: NAPROXEN SODIUM
     Indication: INTERVERTEBRAL DISC DEGENERATION
     Dosage: UNK
     Route: 048
     Dates: start: 2005
  2. ALEVE [Suspect]
     Active Substance: NAPROXEN SODIUM
     Indication: INTERVERTEBRAL DISC DEGENERATION
     Dosage: 6 DF, QD
     Route: 048
     Dates: start: 201411
  3. ALEVE [Suspect]
     Active Substance: NAPROXEN SODIUM
     Indication: INTERVERTEBRAL DISC DEGENERATION
     Dosage: 6 DF, QD
     Route: 048
     Dates: start: 201501

REACTIONS (4)
  - Abdominal discomfort [Unknown]
  - Incorrect dose administered [Not Recovered/Not Resolved]
  - Intentional product misuse [Unknown]
  - Incorrect drug administration duration [Unknown]

NARRATIVE: CASE EVENT DATE: 201411
